FAERS Safety Report 9799400 (Version 1)
Quarter: 2014Q1

REPORT INFORMATION
  Report Type: Spontaneous
  Country: US (occurrence: None)
  Receive Date: 20140103
  Receipt Date: 20140103
  Transmission Date: 20141002
  Serious: No
  Sender: FDA-Public Use
  Company Number: None

PATIENT
  Age: 88 Year
  Sex: Male

DRUGS (5)
  1. ZOLPIDEM [Suspect]
     Indication: INSOMNIA
     Route: 048
     Dates: start: 20131226
  2. MIRTAZEPINE [Concomitant]
  3. LORAZEPAM [Concomitant]
  4. AVODART [Concomitant]
  5. TAMSULOSIN [Concomitant]

REACTIONS (1)
  - Middle insomnia [None]
